FAERS Safety Report 7412894-6 (Version None)
Quarter: 2011Q2

REPORT INFORMATION
  Report Type: 
  Country: None (occurrence: None)
  Receive Date: 20110413
  Receipt Date: 20101029
  Transmission Date: 20111010
  Serious: Yes (Hospitalization)
  Sender: FDA-Public Use
  Company Number: US-BAYER-201028783NA

PATIENT
  Sex: Female
  Weight: 68.027 kg

DRUGS (17)
  1. PROTONIX [Concomitant]
     Dosage: UNK
     Dates: start: 20041201
  2. NEXIUM [Concomitant]
     Dosage: UNK
     Dates: start: 20060501
  3. PRILOSEC [Concomitant]
     Indication: GASTROOESOPHAGEAL REFLUX DISEASE
  4. PROAIR HFA [Concomitant]
     Dosage: UNK
     Dates: start: 20081201
  5. PRILOSEC [Concomitant]
     Indication: DYSPEPSIA
     Dosage: UNK
     Dates: start: 20000101
  6. YASMIN [Suspect]
     Indication: PREMENSTRUAL SYNDROME
  7. DICYCLOMINE [Concomitant]
     Dosage: UNK
     Dates: start: 20060601
  8. ZITHROMAX [Concomitant]
  9. OMEPRAZOLE [Concomitant]
     Dosage: UNK
     Dates: start: 20080301
  10. FLONASE [Concomitant]
     Dosage: UNK
     Dates: start: 20040501
  11. LOPERAMIDE [Concomitant]
     Dosage: UNK
     Dates: start: 20060601
  12. ALBUTEROL [Concomitant]
     Indication: ASTHMA
     Dosage: UNK UNK, PRN
  13. ALLEGRA [Concomitant]
     Dosage: UNK
     Dates: start: 20040501
  14. YASMIN [Suspect]
     Indication: CONTRACEPTION
     Dosage: UNK
     Dates: start: 20040101, end: 20100101
  15. LEVOTHYROXINE SODIUM [Concomitant]
     Dosage: UNK
     Dates: start: 20070201
  16. HUMIBID LA [Concomitant]
     Dosage: UNK
     Dates: start: 20040501
  17. IBUPROFEN [Concomitant]
     Indication: HEADACHE
     Dosage: UNK UNK, PRN

REACTIONS (1)
  - GALLBLADDER INJURY [None]
